FAERS Safety Report 4846002-2 (Version None)
Quarter: 2005Q4

REPORT INFORMATION
  Report Type: 
  Country: None (occurrence: None)
  Receive Date: 20051201
  Receipt Date: 20051122
  Transmission Date: 20060501
  Serious: Yes (Other)
  Sender: FDA-Public Use
  Company Number: 2005158465

PATIENT
  Age: 41 Year
  Sex: Female
  Weight: 63.5036 kg

DRUGS (7)
  1. COOL MINT LISTERINE (MENTHOL, METHYL SALICYLATE, EUCALYPTOL, THYMOL) [Suspect]
     Indication: ALCOHOLIC
     Dosage: 1 LITER ONCE, ORAL
     Route: 048
     Dates: start: 20051121, end: 20051121
  2. ZOPICLONE (ZOPICLONE) [Concomitant]
  3. PHENYTOIN SODIUM [Concomitant]
  4. LEVOTHYROXINE SODIUM [Concomitant]
  5. CITALOPRAM HYDROBROMIDE [Concomitant]
  6. DIAZEPAM [Concomitant]
  7. QUETIAPINE FUMARATE [Concomitant]

REACTIONS (3)
  - ALCOHOL POISONING [None]
  - FEELING ABNORMAL [None]
  - INTENTIONAL DRUG MISUSE [None]
